FAERS Safety Report 8993974 (Version 2)
Quarter: 2013Q1

REPORT INFORMATION
  Report Type: Spontaneous
  Country: US (occurrence: US)
  Receive Date: 20130102
  Receipt Date: 20130204
  Transmission Date: 20140127
  Serious: No
  Sender: FDA-Public Use
  Company Number: US-AMGEN-USASP2012083207

PATIENT
  Age: 51 Year
  Sex: Male
  Weight: 96.15 kg

DRUGS (4)
  1. ENBREL [Suspect]
     Indication: PSORIATIC ARTHROPATHY
     Dosage: 50 MG, QWK
     Route: 058
     Dates: start: 20100825
  2. ENBREL [Suspect]
     Indication: PSORIASIS
  3. LISINOPRIL [Concomitant]
     Indication: HYPERTENSION
     Dosage: 20 MG, QD
     Route: 048
  4. PRAVASTATIN [Concomitant]
     Indication: BLOOD CHOLESTEROL INCREASED
     Dosage: 20 MG, QHS

REACTIONS (4)
  - Influenza like illness [Not Recovered/Not Resolved]
  - Dysgeusia [Unknown]
  - Pain [Unknown]
  - Irritability [Unknown]
